FAERS Safety Report 7444935-4 (Version None)
Quarter: 2011Q2

REPORT INFORMATION
  Report Type: 
  Country: None (occurrence: None)
  Receive Date: 20110429
  Receipt Date: 20110419
  Transmission Date: 20111010
  Serious: Yes (Other)
  Sender: FDA-Public Use
  Company Number: PHHY2010JP59782

PATIENT
  Sex: Male
  Weight: 72 kg

DRUGS (9)
  1. AFINITOR [Suspect]
     Indication: METASTATIC RENAL CELL CARCINOMA
     Dosage: 10 MG/DAY
     Route: 048
     Dates: start: 20100605, end: 20100830
  2. INTERFERON ALFA [Concomitant]
     Indication: METASTATIC RENAL CELL CARCINOMA
     Dosage: 3000000 DF, UNK
     Dates: start: 20060412, end: 20070111
  3. TECELEUKIN [Concomitant]
     Indication: METASTATIC RENAL CELL CARCINOMA
     Dosage: 700000 DF, UNK
     Dates: start: 20070112, end: 20080604
  4. TAKEPRON [Concomitant]
     Dosage: 30 MG, UNK
     Route: 048
     Dates: end: 20101213
  5. SORAFENIB TOSILATE [Concomitant]
     Indication: METASTATIC RENAL CELL CARCINOMA
     Dosage: 800 MG, UNK
     Route: 048
     Dates: start: 20080605, end: 20080908
  6. SUNITINIB MALATE [Concomitant]
     Indication: METASTATIC RENAL CELL CARCINOMA
     Dosage: 50 MG, UNK
     Route: 048
     Dates: start: 20080909, end: 20100605
  7. AMLODIN [Concomitant]
     Dosage: 10 MG, UNK
     Route: 048
     Dates: end: 20100627
  8. AFINITOR [Suspect]
     Dosage: 5 MG, DAILY
     Route: 048
     Dates: start: 20100914, end: 20101018
  9. BLOPRESS [Concomitant]
     Dosage: 8 MG, UNK
     Route: 048
     Dates: end: 20100627

REACTIONS (2)
  - MALAISE [None]
  - NEOPLASM MALIGNANT [None]
